FAERS Safety Report 7525115-0 (Version None)
Quarter: 2011Q2

REPORT INFORMATION
  Report Type: 
  Country: None (occurrence: None)
  Receive Date: 20110606
  Receipt Date: 20091120
  Transmission Date: 20111010
  Serious: Yes (Hospitalization, Other)
  Sender: FDA-Public Use
  Company Number: US-BAYER-200940949NA

PATIENT
  Age: 55 Year
  Sex: Male
  Weight: 127 kg

DRUGS (27)
  1. SODIUM NITROPRUSSIDE [Concomitant]
     Dosage: 0.5 MCG/KG/MIN
     Route: 042
     Dates: start: 20021229, end: 20021230
  2. LOPRESSOR [Concomitant]
     Dosage: UNK
     Route: 042
     Dates: start: 20021229, end: 20021230
  3. EPINEPHRINE [Concomitant]
     Dosage: UNK
     Route: 042
     Dates: start: 20021230, end: 20021230
  4. MILRINONE [Concomitant]
     Dosage: UNK
     Route: 042
     Dates: start: 20021230
  5. NIPRIDE [Concomitant]
     Dosage: UNK
     Route: 042
     Dates: start: 20021230, end: 20021230
  6. BENADRYL [Concomitant]
     Dosage: UNK
     Route: 042
     Dates: start: 20021230, end: 20021230
  7. CRYOPRECIPITATES [Concomitant]
     Dosage: 24 U, UNK
     Route: 042
     Dates: start: 20021230, end: 20021230
  8. TRASYLOL [Suspect]
     Dosage: 280 ML PUMP PRIME
     Route: 042
     Dates: start: 20021230, end: 20021230
  9. TRASYLOL [Suspect]
     Dosage: 50 ML/HR INFUSION
     Route: 042
     Dates: start: 20021230, end: 20021230
  10. LIDOCAINE [Concomitant]
     Dosage: UNK
     Route: 042
     Dates: start: 20021230, end: 20021230
  11. MAGNESIUM SULFATE [Concomitant]
     Dosage: UNK
     Route: 042
     Dates: start: 20021230
  12. PAVULON [Concomitant]
     Dosage: UNK
     Route: 042
     Dates: start: 20021230, end: 20021230
  13. PLATELETS [Concomitant]
     Dosage: 22 U, UNK
     Route: 042
     Dates: start: 20021230, end: 20021230
  14. PROPOFOL [Concomitant]
     Dosage: UNK
     Route: 042
     Dates: start: 20021230
  15. SOLU-MEDROL [Concomitant]
     Dosage: UNK
     Route: 042
     Dates: start: 20021230, end: 20021230
  16. INSULIN [Concomitant]
     Dosage: UNK
     Route: 042
     Dates: start: 20021230
  17. FRESH FROZEN PLASMA [Concomitant]
     Dosage: 12 U, UNK
     Route: 042
     Dates: start: 20021230, end: 20021230
  18. TRASYLOL [Suspect]
     Indication: AORTIC DISSECTION
     Dosage: 1 ML, ONCE
     Route: 042
     Dates: start: 20021230, end: 20021230
  19. ETOMIDATE [Concomitant]
     Dosage: UNK
     Route: 042
     Dates: start: 20021230, end: 20021230
  20. VANCOMYCIN [Concomitant]
     Dosage: 500 MG, UNK
     Route: 042
     Dates: start: 20021230
  21. NOREPINEPHRINE BITARTRATE [Concomitant]
     Dosage: UNK
     Route: 042
     Dates: start: 20021230
  22. RED BLOOD CELLS [Concomitant]
     Dosage: 3 U, UNK
     Route: 042
     Dates: start: 20021230, end: 20021230
  23. ESMOLOL [Concomitant]
     Dosage: UNK
     Route: 042
     Dates: start: 20021229, end: 20021230
  24. FENTANYL [Concomitant]
     Dosage: UNK
     Route: 042
     Dates: start: 20021230, end: 20021230
  25. LASIX [Concomitant]
     Dosage: UNK
     Route: 042
     Dates: start: 20021230
  26. NITROGLYCERIN [Concomitant]
     Dosage: UNK
     Route: 042
     Dates: start: 20021230, end: 20021230
  27. PROTAMINE SULFATE [Concomitant]
     Dosage: UNK
     Route: 042
     Dates: start: 20021230, end: 20021230

REACTIONS (11)
  - INJURY [None]
  - PAIN [None]
  - ANHEDONIA [None]
  - MULTI-ORGAN FAILURE [None]
  - UNEVALUABLE EVENT [None]
  - DISABILITY [None]
  - RENAL FAILURE [None]
  - RENAL INJURY [None]
  - DEPRESSION [None]
  - ANXIETY [None]
  - FEAR [None]
